FAERS Safety Report 9278481 (Version 3)
Quarter: 2013Q2

REPORT INFORMATION
  Report Type: Spontaneous
  Country: US (occurrence: US)
  Receive Date: 20130508
  Receipt Date: 20130605
  Transmission Date: 20140414
  Serious: Yes (Other)
  Sender: FDA-Public Use
  Company Number: US-VERTEX PHARMACEUTICALS INC-2013-005812

PATIENT
  Age: 61 Year
  Sex: Female
  Weight: 67 kg

DRUGS (10)
  1. INCIVEK [Suspect]
     Indication: HEPATITIS C
     Dosage: 750 MG, TID
     Route: 048
     Dates: start: 20130501, end: 20130506
  2. PEGASYS [Suspect]
     Indication: HEPATITIS C
     Dosage: 180 ?G, QW
     Route: 058
     Dates: start: 20130501
  3. RIBAVIRIN [Suspect]
     Indication: HEPATITIS C
     Dosage: 1000 MG, QD
     Route: 048
     Dates: start: 20130501
  4. AMLODIPINE [Concomitant]
     Indication: HYPERTENSION
     Dosage: 5 MG, QD
     Route: 048
  5. TRAZODONE [Concomitant]
     Dosage: 50 MG, QD
     Route: 048
  6. ATIVAN [Concomitant]
     Indication: ANXIETY
     Dosage: UNK
     Route: 048
  7. LISINOPRIL [Concomitant]
  8. KLONOPIN [Concomitant]
  9. VITAMIN D [Concomitant]
  10. POTASSIUM [Concomitant]

REACTIONS (5)
  - Rash generalised [Recovered/Resolved]
  - Mass [Recovered/Resolved]
  - Dizziness [Not Recovered/Not Resolved]
  - Fatigue [Not Recovered/Not Resolved]
  - Blister [Recovered/Resolved]
